FAERS Safety Report 17551439 (Version 1)
Quarter: 2020Q1

REPORT INFORMATION
  Report Type: Report from Study
  Country: GT (occurrence: GT)
  Receive Date: 20200317
  Receipt Date: 20200317
  Transmission Date: 20200409
  Serious: Yes (Other)
  Sender: FDA-Public Use
  Company Number: NVSC2020GT027129

PATIENT
  Age: 85 Year
  Sex: Male

DRUGS (2)
  1. VYMADA [Suspect]
     Active Substance: SACUBITRIL\VALSARTAN
     Indication: PRODUCT USED FOR UNKNOWN INDICATION
     Dosage: 200 MG, BID (STARTED 1 YEAR AGO/ JANUARY)
     Route: 065
     Dates: start: 2019
  2. EXFORGE HCT [Suspect]
     Active Substance: AMLODIPINE BESYLATE\HYDROCHLOROTHIAZIDE\VALSARTAN
     Indication: PRODUCT USED FOR UNKNOWN INDICATION
     Dosage: UNK UNK, QD (10/320/25MG)
     Route: 065
     Dates: start: 2019

REACTIONS (5)
  - Nephrolithiasis [Unknown]
  - Cardiac disorder [Unknown]
  - Hypertension [Unknown]
  - Incorrect dose administered [Unknown]
  - Palpitations [Unknown]
